FAERS Safety Report 17095807 (Version 2)
Quarter: 2020Q1

REPORT INFORMATION
  Report Type: Spontaneous
  Country: US (occurrence: US)
  Receive Date: 20191201
  Receipt Date: 20200203
  Transmission Date: 20200409
  Serious: No
  Sender: FDA-Public Use
  Company Number: US-CELGENEUS-USA-20191109234

PATIENT
  Age: 51 Year
  Sex: Female
  Weight: 78.09 kg

DRUGS (2)
  1. THALOMID [Suspect]
     Active Substance: THALIDOMIDE
     Indication: SUBACUTE CUTANEOUS LUPUS ERYTHEMATOSUS
     Dosage: 200 MILLIGRAM
     Route: 048
     Dates: start: 20170303
  2. THALOMID [Suspect]
     Active Substance: THALIDOMIDE
     Indication: OFF LABEL USE

REACTIONS (3)
  - Gait disturbance [Unknown]
  - Bronchitis [Recovered/Resolved]
  - Limb discomfort [Unknown]

NARRATIVE: CASE EVENT DATE: 202001
